FAERS Safety Report 21529127 (Version 1)
Quarter: 2022Q4

REPORT INFORMATION
  Report Type: Spontaneous
  Country: US (occurrence: US)
  Receive Date: 20221031
  Receipt Date: 20221031
  Transmission Date: 20230112
  Serious: No
  Sender: FDA-Public Use
  Company Number: US-PFIZER INC-202200268460

PATIENT
  Age: 7 Year
  Sex: Male

DRUGS (2)
  1. TOZINAMERAN [Suspect]
     Active Substance: TOZINAMERAN
     Indication: COVID-19 immunisation
     Dosage: DOSE 2, 0.2 ML SINGLE
     Route: 030
     Dates: start: 20220212, end: 20220212
  2. SODIUM CHLORIDE [Suspect]
     Active Substance: SODIUM CHLORIDE
     Dosage: UNK (DILUENT)
     Dates: start: 20220212, end: 20220212

REACTIONS (3)
  - Poor quality product administered [Unknown]
  - Product administration error [Unknown]
  - Headache [Unknown]

NARRATIVE: CASE EVENT DATE: 20220201
